FAERS Safety Report 11616663 (Version 1)
Quarter: 2015Q4

REPORT INFORMATION
  Report Type: Report from Study
  Country: VE (occurrence: VE)
  Receive Date: 20151009
  Receipt Date: 20151009
  Transmission Date: 20160304
  Serious: Yes (Other)
  Sender: FDA-Public Use
  Company Number: PHHY2015VE121680

PATIENT
  Sex: Female

DRUGS (5)
  1. BENICAR [Concomitant]
     Active Substance: OLMESARTAN MEDOXOMIL
     Indication: HYPERTENSION
     Dosage: 20 MG, QD
     Route: 065
     Dates: start: 2006
  2. SPIRIVA [Concomitant]
     Active Substance: TIOTROPIUM BROMIDE MONOHYDRATE
     Indication: ASTHMA
     Dosage: 18 UG, QD
     Route: 065
     Dates: start: 2011
  3. MIFLONIDE [Suspect]
     Active Substance: BUDESONIDE
     Indication: ASTHMA
     Dosage: 12 UG, Q12H
     Route: 048
     Dates: start: 2010
  4. XOLAIR [Suspect]
     Active Substance: OMALIZUMAB
     Indication: ASTHMA
     Dosage: 600 MG, EVERY 15 DAYS
     Route: 058
     Dates: start: 2015
  5. FORADIL [Suspect]
     Active Substance: FORMOTEROL FUMARATE
     Indication: ASTHMA
     Dosage: 400 UG, Q12H
     Route: 048
     Dates: start: 2010

REACTIONS (3)
  - Pulmonary hypertension [Unknown]
  - Mobility decreased [Unknown]
  - Cardiac failure [Unknown]
